FAERS Safety Report 4855647-5 (Version None)
Quarter: 2005Q4

REPORT INFORMATION
  Report Type: 
  Country: None (occurrence: None)
  Receive Date: 20051216
  Receipt Date: 20051117
  Transmission Date: 20060501
  Serious: Yes (Hospitalization)
  Sender: FDA-Public Use
  Company Number: FRWYE151217NOV05

PATIENT
  Age: 54 Year
  Sex: Female

DRUGS (3)
  1. ENBREL [Suspect]
     Indication: RHEUMATOID ARTHRITIS
     Route: 058
     Dates: start: 20040308, end: 20050101
  2. DI-ANTALVIC [Concomitant]
  3. MEDROL [Concomitant]

REACTIONS (1)
  - AUTOIMMUNE THYROIDITIS [None]
